FAERS Safety Report 13464508 (Version 1)
Quarter: 2017Q2

REPORT INFORMATION
  Report Type: Spontaneous
  Country: US (occurrence: US)
  Receive Date: 20170420
  Receipt Date: 20170420
  Transmission Date: 20170830
  Serious: Yes (Other)
  Sender: FDA-Public Use
  Company Number: US-ROCHE-688141

PATIENT
  Age: 15 Year
  Sex: Male
  Weight: 72.7 kg

DRUGS (2)
  1. ACCUTANE [Suspect]
     Active Substance: ISOTRETINOIN
     Indication: ACNE
     Route: 048
  2. ADDERALL [Concomitant]
     Active Substance: AMPHETAMINE ASPARTATE\AMPHETAMINE SULFATE\DEXTROAMPHETAMINE SACCHARATE\DEXTROAMPHETAMINE SULFATE
     Route: 065

REACTIONS (6)
  - Arthralgia [Unknown]
  - Hypoacusis [Unknown]
  - Dry skin [Unknown]
  - Back pain [Unknown]
  - Myalgia [Unknown]
  - Lethargy [Unknown]

NARRATIVE: CASE EVENT DATE: 201001
